FAERS Safety Report 9494906 (Version 2)
Quarter: 2013Q3

REPORT INFORMATION
  Report Type: Report from Study
  Country: US (occurrence: US)
  Receive Date: 20130903
  Receipt Date: 20130903
  Transmission Date: 20140515
  Serious: Yes (Other)
  Sender: FDA-Public Use
  Company Number: US-SANOFI-AVENTIS-2013SA054889

PATIENT
  Sex: Female

DRUGS (1)
  1. AUBAGIO [Suspect]
     Indication: MULTIPLE SCLEROSIS
     Route: 048
     Dates: start: 20121219

REACTIONS (5)
  - Multiple sclerosis [Unknown]
  - Eye disorder [Unknown]
  - Headache [Unknown]
  - Alopecia [Unknown]
  - Drug dose omission [Unknown]
